FAERS Safety Report 7500120-9 (Version None)
Quarter: 2011Q2

REPORT INFORMATION
  Report Type: 
  Country: None (occurrence: None)
  Receive Date: 20110524
  Receipt Date: 20100607
  Transmission Date: 20111010
  Serious: No
  Sender: FDA-Public Use
  Company Number: US-NOVEN-ALL1-2010-01765

PATIENT

DRUGS (3)
  1. VITAMIN C                          /00008001/ [Concomitant]
     Dosage: UNK, 1X/DAY:QD
     Route: 048
  2. MULTI-VITAMINS [Concomitant]
     Dosage: UNK, 1X/DAY:QD
     Route: 048
  3. DAYTRANA [Suspect]
     Dosage: 15 MG, 1X/DAY:QD
     Route: 062
     Dates: start: 20100101

REACTIONS (2)
  - PRODUCT QUALITY ISSUE [None]
  - APPLICATION SITE PRURITUS [None]
